FAERS Safety Report 8013569 (Version 6)
Quarter: 2017Q1

REPORT INFORMATION
  Report Type: Report from Study
  Country: IL (occurrence: IL)
  Receive Date: 20110627
  Receipt Date: 20170220
  Transmission Date: 20170429
  Serious: Yes (Hospitalization)
  Sender: FDA-Public Use
  Company Number: IL-ROCHE-744758

PATIENT
  Age: 57 Year
  Sex: Female
  Weight: 78 kg

DRUGS (19)
  1. ENALAPRIL [Concomitant]
     Active Substance: ENALAPRIL
     Dosage: REPORTED AS: CONVERTIN, TDD: 20 MG
     Route: 065
  2. VERAPAMIL [Concomitant]
     Active Substance: VERAPAMIL HYDROCHLORIDE
     Dosage: REPORTED AS: IKAPRESS, TDD: 240
     Route: 065
  3. NORMOPRESAN [Concomitant]
     Dosage: TDD: 0.075
     Route: 065
  4. ELTROXIN [Concomitant]
     Active Substance: LEVOTHYROXINE
     Route: 065
  5. FUROSEMIDE. [Concomitant]
     Active Substance: FUROSEMIDE
     Dosage: REPORTED AS: FUSID, TDD: 40
     Route: 065
  6. CALTRATE [Concomitant]
     Active Substance: CALCIUM CARBONATE
     Route: 065
  7. TAMOXIFEN [Concomitant]
     Active Substance: TAMOXIFEN
     Route: 065
     Dates: start: 20100226, end: 20100915
  8. METHOXY POLYETHYLENE GLYCOL-EPOETIN BETA [Suspect]
     Active Substance: METHOXY POLYETHYLENE GLYCOL-EPOETIN BETA
     Dosage: LAST DOSE PRIOR TO SEA; CARCINOMA LEFT BREAST
     Route: 042
  9. THYROXINE SODIUM [Concomitant]
     Active Substance: LEVOTHYROXINE SODIUM
     Route: 065
  10. TRIBEMIN [Concomitant]
     Route: 065
  11. ALPHA D3 [Concomitant]
     Dosage: REPORTED AS: ALFA D3
     Route: 065
  12. METHOXY POLYETHYLENE GLYCOL-EPOETIN BETA [Suspect]
     Active Substance: METHOXY POLYETHYLENE GLYCOL-EPOETIN BETA
     Route: 042
  13. TAMOXIFEN [Concomitant]
     Active Substance: TAMOXIFEN
     Dosage: REPORTED AS: TAMOXIPEN
     Route: 065
     Dates: start: 20090315, end: 20100912
  14. METHOXY POLYETHYLENE GLYCOL-EPOETIN BETA [Suspect]
     Active Substance: METHOXY POLYETHYLENE GLYCOL-EPOETIN BETA
     Indication: NEPHROGENIC ANAEMIA
     Route: 042
  15. SIMVASTATIN. [Concomitant]
     Active Substance: SIMVASTATIN
     Route: 065
  16. FOLIC ACID. [Concomitant]
     Active Substance: FOLIC ACID
     Route: 065
  17. VITAMIN C [Concomitant]
     Active Substance: ASCORBIC ACID
     Route: 065
  18. ADALIMUMAB [Concomitant]
     Active Substance: ADALIMUMAB
  19. DOXAZOSIN [Concomitant]
     Active Substance: DOXAZOSIN\DOXAZOSIN MESYLATE
     Route: 065

REACTIONS (2)
  - Breast cancer [Recovered/Resolved]
  - IIIrd nerve paralysis [Recovered/Resolved with Sequelae]

NARRATIVE: CASE EVENT DATE: 20100105
